FAERS Safety Report 22207225 (Version 5)
Quarter: 2024Q4

REPORT INFORMATION
  Report Type: Spontaneous
  Country: US (occurrence: US)
  Receive Date: 20230413
  Receipt Date: 20241227
  Transmission Date: 20250114
  Serious: No
  Sender: PFIZER
  Company Number: US-PFIZER INC-PV202300066023

PATIENT
  Age: 61 Year
  Sex: Female
  Weight: 87.8 kg

DRUGS (2)
  1. IBRANCE [Suspect]
     Active Substance: PALBOCICLIB
     Indication: Breast cancer female
     Dosage: 125 MG
  2. IBRANCE [Suspect]
     Active Substance: PALBOCICLIB
     Dosage: 125 MG, CYCLIC (TAKE 1 TABLET DAILY, WITH OR WITHOUT FOOD, FOR 21 DAYS FOLLOWED BY 7 DAYS OFF)
     Route: 048

REACTIONS (5)
  - Nervousness [Unknown]
  - Illness [Unknown]
  - Full blood count decreased [Unknown]
  - Vomiting [Unknown]
  - Product dose omission in error [Unknown]
